FAERS Safety Report 18450967 (Version 1)
Quarter: 2020Q4

REPORT INFORMATION
  Report Type: Spontaneous
  Country: US (occurrence: US)
  Receive Date: 20201030
  Receipt Date: 20201030
  Transmission Date: 20210114
  Serious: Yes (Other)
  Sender: FDA-Public Use
  Company Number: US-PAIPHARMA-2020-US-021542

PATIENT
  Age: 4 Month
  Sex: Male

DRUGS (1)
  1. NYSTATIN (NON-SPECIFIC) [Suspect]
     Active Substance: NYSTATIN
     Indication: PRODUCT USED FOR UNKNOWN INDICATION
     Route: 048

REACTIONS (1)
  - Anaphylactic reaction [Unknown]
